FAERS Safety Report 25301804 (Version 1)
Quarter: 2025Q2

REPORT INFORMATION
  Report Type: Spontaneous
  Country: US (occurrence: None)
  Receive Date: 20250511
  Receipt Date: 20250511
  Transmission Date: 20250716
  Serious: Yes (Life-Threatening, Hospitalization, Disabling, Other)
  Sender: FDA-CTU
  Company Number: None

PATIENT
  Age: 60 Year
  Sex: Male
  Weight: 67.5 kg

DRUGS (2)
  1. KEYTRUDA [Suspect]
     Active Substance: PEMBROLIZUMAB
     Indication: Lung neoplasm malignant
     Dates: start: 20250415, end: 20250415
  2. IVERMECTIN [Concomitant]
     Active Substance: IVERMECTIN

REACTIONS (5)
  - Diabetic ketoacidosis [None]
  - Pancreatic failure [None]
  - Product communication issue [None]
  - Product complaint [None]
  - Inability to afford medication [None]

NARRATIVE: CASE EVENT DATE: 20250420
